FAERS Safety Report 21725376 (Version 1)
Quarter: 2022Q4

REPORT INFORMATION
  Report Type: Spontaneous
  Country: NL (occurrence: NL)
  Receive Date: 20221214
  Receipt Date: 20221214
  Transmission Date: 20230113
  Serious: Yes (Life-Threatening, Hospitalization)
  Sender: FDA-Public Use
  Company Number: NL-LRB-00853771

PATIENT
  Sex: Female
  Weight: 74 kg

DRUGS (1)
  1. DOXAZOSIN [Suspect]
     Active Substance: DOXAZOSIN MESYLATE
     Indication: Hypertension
     Dosage: 1 DOSAGE FORM, ONCE A DAY,1X PER DAG
     Route: 065
     Dates: start: 20221102, end: 20221102

REACTIONS (1)
  - Tachycardia [Recovered/Resolved]
